FAERS Safety Report 16449509 (Version 1)
Quarter: 2019Q2

REPORT INFORMATION
  Report Type: Spontaneous
  Country: US (occurrence: US)
  Receive Date: 20190619
  Receipt Date: 20190619
  Transmission Date: 20190711
  Serious: No
  Sender: FDA-Public Use
  Company Number: US-ROCHE-2270644

PATIENT
  Age: 47 Year
  Sex: Female

DRUGS (3)
  1. ACTEMRA [Suspect]
     Active Substance: TOCILIZUMAB
     Dosage: 4TH INFUSION
     Route: 042
     Dates: start: 20190218
  2. ACTEMRA [Suspect]
     Active Substance: TOCILIZUMAB
     Indication: RHEUMATOID ARTHRITIS
     Route: 042
     Dates: start: 201812
  3. ACTEMRA [Suspect]
     Active Substance: TOCILIZUMAB
     Dosage: 3RD INFUSION
     Route: 042

REACTIONS (12)
  - Tinnitus [Unknown]
  - Chest discomfort [Recovered/Resolved]
  - Vomiting [Recovered/Resolved]
  - Nausea [Recovered/Resolved]
  - Cold sweat [Unknown]
  - Palpitations [Recovered/Resolved]
  - Dizziness [Recovering/Resolving]
  - Hypoaesthesia oral [Unknown]
  - Visual impairment [Unknown]
  - Dyspnoea [Recovered/Resolved]
  - Headache [Unknown]
  - Chest pain [Unknown]

NARRATIVE: CASE EVENT DATE: 20190218
